FAERS Safety Report 5075325-X (Version None)
Quarter: 2006Q3

REPORT INFORMATION
  Report Type: 
  Country: None (occurrence: None)
  Receive Date: 20060807
  Receipt Date: 20060807
  Transmission Date: 20061208
  Serious: Yes (Other)
  Sender: FDA-Public Use
  Company Number: None

PATIENT
  Age: 15 Year
  Sex: Male

DRUGS (3)
  1. VANCOMYCIN [Suspect]
     Indication: ABSCESS
     Dosage: 500MG EVERY 12 HOURS = TOTAL DOSE 1GM/DAY IV
     Route: 042
     Dates: start: 20060727, end: 20060728
  2. GENTAMICIN [Concomitant]
  3. ROCEPHIN [Concomitant]

REACTIONS (2)
  - PRURITUS [None]
  - RASH MACULAR [None]
